FAERS Safety Report 5868574-1 (Version None)
Quarter: 2008Q3

REPORT INFORMATION
  Report Type: 
  Country: None (occurrence: None)
  Receive Date: 20080818
  Receipt Date: 20080418
  Transmission Date: 20090109
  Serious: No
  Sender: FDA-Public Use
  Company Number: 20085050

PATIENT

DRUGS (4)
  1. LIORESAL [Suspect]
     Indication: MUSCLE SPASTICITY
     Dosage: DAILY, INTRATHECAL
     Route: 037
  2. SUFENTA PRESERVATIVE FREE [Concomitant]
  3. MARCAINE [Concomitant]
  4. CLONIDINE [Concomitant]

REACTIONS (1)
  - OVERDOSE [None]
